FAERS Safety Report 18573991 (Version 2)
Quarter: 2020Q4

REPORT INFORMATION
  Report Type: Spontaneous
  Country: DE (occurrence: DE)
  Receive Date: 20201203
  Receipt Date: 20201215
  Transmission Date: 20210114
  Serious: Yes (Other)
  Sender: FDA-Public Use
  Company Number: NVSC2020DE320906

PATIENT
  Age: 46 Year
  Sex: Female

DRUGS (3)
  1. PRILOCAINE HYDROCHLORIDE. [Suspect]
     Active Substance: PRILOCAINE HYDROCHLORIDE
     Indication: VARICOSE VEIN OPERATION
     Dosage: 825 MG
     Route: 058
  2. LIDOCAINE HYDROCHLORIDE. [Suspect]
     Active Substance: LIDOCAINE HYDROCHLORIDE
     Indication: ALLERGY TEST
     Dosage: UNK
     Route: 065
  3. PRILOCAINE HYDROCHLORIDE. [Suspect]
     Active Substance: PRILOCAINE HYDROCHLORIDE
     Indication: LOCAL ANAESTHESIA

REACTIONS (3)
  - Type IV hypersensitivity reaction [Unknown]
  - Therapeutic product cross-reactivity [Unknown]
  - Drug hypersensitivity [Unknown]
